FAERS Safety Report 20720586 (Version 6)
Quarter: 2022Q4

REPORT INFORMATION
  Report Type: Spontaneous
  Country: PL (occurrence: PL)
  Receive Date: 20220418
  Receipt Date: 20221017
  Transmission Date: 20230112
  Serious: Yes (Hospitalization, Other)
  Sender: FDA-Public Use
  Company Number: PL-ELI_LILLY_AND_COMPANY-PL202204005297

PATIENT
  Age: 31 Year
  Sex: Male

DRUGS (12)
  1. TADALAFIL [Interacting]
     Active Substance: TADALAFIL
     Indication: Erectile dysfunction
     Dosage: 10 MG, AS NECESSARY
     Route: 065
  2. TADALAFIL [Interacting]
     Active Substance: TADALAFIL
     Indication: Anorgasmia
  3. SERTRALINE [Interacting]
     Active Substance: SERTRALINE HYDROCHLORIDE
     Indication: Depression
     Dosage: 50 MG, EACH MORNING
     Route: 065
  4. SERTRALINE [Interacting]
     Active Substance: SERTRALINE HYDROCHLORIDE
     Indication: Insomnia
  5. SERTRALINE [Interacting]
     Active Substance: SERTRALINE HYDROCHLORIDE
     Indication: Anxiety
  6. SERTRALINE [Interacting]
     Active Substance: SERTRALINE HYDROCHLORIDE
     Indication: Affective disorder
  7. ALPRAZOLAM [Interacting]
     Active Substance: ALPRAZOLAM
     Indication: Depression
     Dosage: UNK, UNKNOWN
     Route: 065
  8. ALPRAZOLAM [Interacting]
     Active Substance: ALPRAZOLAM
     Indication: Anxiety
     Dosage: 1 MG, EACH EVENING
     Route: 065
  9. ALPRAZOLAM [Interacting]
     Active Substance: ALPRAZOLAM
     Indication: Insomnia
  10. ALPRAZOLAM [Interacting]
     Active Substance: ALPRAZOLAM
     Indication: Affective disorder
  11. RAMIPRIL [Concomitant]
     Active Substance: RAMIPRIL
     Indication: Hypertension
     Dosage: 10 MG, UNKNOWN
     Route: 065
  12. ACETAMINOPHEN\TRAMADOL [Concomitant]
     Active Substance: ACETAMINOPHEN\TRAMADOL
     Indication: Back pain
     Dosage: 37.5/325 MG TWICE DAILY
     Route: 065

REACTIONS (16)
  - Erectile dysfunction [Recovered/Resolved]
  - Hyperaesthesia [Recovered/Resolved]
  - Anorgasmia [Recovered/Resolved]
  - Tachypnoea [Recovered/Resolved]
  - Drug interaction [Recovered/Resolved]
  - Pain [Recovered/Resolved]
  - Insomnia [Recovering/Resolving]
  - Blood pressure increased [Recovering/Resolving]
  - Tachycardia [Recovering/Resolving]
  - Back pain [Recovered/Resolved]
  - Sacral pain [Recovered/Resolved]
  - Depression [Unknown]
  - Affective disorder [Recovering/Resolving]
  - Ill-defined disorder [Unknown]
  - Neuralgia [Recovered/Resolved]
  - Product use in unapproved indication [Unknown]
